FAERS Safety Report 16234081 (Version 1)
Quarter: 2019Q2

REPORT INFORMATION
  Report Type: Spontaneous
  Country: US (occurrence: US)
  Receive Date: 20190424
  Receipt Date: 20190424
  Transmission Date: 20190711
  Serious: No
  Sender: FDA-Public Use
  Company Number: US-TEVA-2019-US-1039223

PATIENT
  Sex: Female

DRUGS (14)
  1. PREVACID [Concomitant]
     Active Substance: LANSOPRAZOLE
     Route: 065
  2. VALIUM [Concomitant]
     Active Substance: DIAZEPAM
     Route: 065
  3. COMBIVENT [Concomitant]
     Active Substance: ALBUTEROL SULFATE\IPRATROPIUM BROMIDE
     Route: 065
  4. FUROSEMIDE. [Concomitant]
     Active Substance: FUROSEMIDE
     Route: 065
  5. CHEWABLE CALCIUM CITRATE WITH VITAMIN D [Concomitant]
     Route: 065
  6. KETOCONAZOLE CREAM [Suspect]
     Active Substance: KETOCONAZOLE
     Indication: PSORIASIS
     Dates: start: 20190404
  7. TYLENOL [Concomitant]
     Active Substance: ACETAMINOPHEN
     Route: 065
  8. POTASSIUM CHLORIDE. [Concomitant]
     Active Substance: POTASSIUM CHLORIDE
     Route: 065
  9. IMODIUM [Concomitant]
     Active Substance: LOPERAMIDE HYDROCHLORIDE
     Route: 065
  10. KETOCONAZOLE CREAM [Suspect]
     Active Substance: KETOCONAZOLE
     Indication: ECZEMA
  11. KETOCONAZOLE CREAM [Suspect]
     Active Substance: KETOCONAZOLE
     Indication: FUNGAL INFECTION
  12. QVAR [Concomitant]
     Active Substance: BECLOMETHASONE DIPROPIONATE
     Route: 065
  13. RANITIDINE. [Concomitant]
     Active Substance: RANITIDINE
     Route: 065
  14. AYR NASAL SALINE [Concomitant]
     Route: 065

REACTIONS (5)
  - Product use in unapproved indication [Unknown]
  - Ear pain [Unknown]
  - Musculoskeletal stiffness [Unknown]
  - Diarrhoea [Unknown]
  - Feeling abnormal [Unknown]
